FAERS Safety Report 8375774-8 (Version None)
Quarter: 2012Q2

REPORT INFORMATION
  Report Type: 
  Country: None (occurrence: None)
  Receive Date: 20120518
  Receipt Date: 20120518
  Transmission Date: 20120825
  Serious: Yes (Hospitalization)
  Sender: FDA-Public Use
  Company Number: None

PATIENT
  Sex: Male

DRUGS (10)
  1. INCIVEK [Concomitant]
  2. METOPROLOL TARTRATE [Concomitant]
  3. ASPIRIN [Concomitant]
  4. LIPITOR [Concomitant]
  5. SPIRONOLACTONE [Concomitant]
  6. PEGASYS [Suspect]
     Indication: HEPATITIS C
     Dosage: 135 MCG QW SQ
     Route: 058
     Dates: start: 20120322
  7. FISH OIL [Concomitant]
  8. RIBAVIRIN [Suspect]
     Indication: HEPATITIS C
     Dosage: 200 MG BID PO
     Route: 048
     Dates: start: 20120322
  9. CHLORTHALIDONE [Concomitant]
  10. FUROSEMIDE [Concomitant]

REACTIONS (4)
  - RENAL FAILURE [None]
  - NAUSEA [None]
  - DEHYDRATION [None]
  - VOMITING [None]
